FAERS Safety Report 7431243-0 (Version None)
Quarter: 2011Q2

REPORT INFORMATION
  Report Type: 
  Country: None (occurrence: None)
  Receive Date: 20110421
  Receipt Date: 20110408
  Transmission Date: 20111010
  Serious: Yes (Hospitalization, Other)
  Sender: FDA-Public Use
  Company Number: CA-ELI_LILLY_AND_COMPANY-CA201104002395

PATIENT
  Sex: Male

DRUGS (13)
  1. ZYPREXA [Suspect]
     Dosage: 1.5 MG, EACH EVENING
  2. ZYPREXA [Suspect]
     Dosage: 10 MG, QD
  3. ZYPREXA [Suspect]
     Dosage: 15 MG, QD
  4. ZYPREXA ZYDIS [Suspect]
     Indication: SCHIZOPHRENIA
     Dosage: 20 MG, EACH EVENING
     Dates: start: 20080722
  5. ZYPREXA [Suspect]
     Indication: SCHIZOPHRENIA
     Dosage: 2.5 MG, EACH EVENING X2
     Dates: start: 20000410
  6. ZYPREXA [Suspect]
     Dosage: 20 MG, QD
  7. LORAZEPAM [Concomitant]
  8. CELEXA [Concomitant]
  9. ZYPREXA [Suspect]
     Dosage: 2.5 MG, EACH EVENING
  10. ZYPREXA [Suspect]
     Dosage: 30 MG, EACH EVENING
  11. ZYPREXA ZYDIS [Suspect]
     Dosage: 5 MG, PRN
     Dates: start: 20080911
  12. RISPERIDONE [Concomitant]
     Dosage: 5 MG, EACH EVENING
  13. CLONAZEPAM [Concomitant]

REACTIONS (10)
  - BLOOD CHOLESTEROL INCREASED [None]
  - OBESITY [None]
  - HEPATITIS ACUTE [None]
  - HYPERTENSION [None]
  - DIABETES MELLITUS [None]
  - WEIGHT INCREASED [None]
  - OVERDOSE [None]
  - HEPATIC STEATOSIS [None]
  - HAEMATOCHEZIA [None]
  - SLEEP APNOEA SYNDROME [None]
